FAERS Safety Report 4975263-4 (Version None)
Quarter: 2006Q2

REPORT INFORMATION
  Report Type: 
  Country: None (occurrence: None)
  Receive Date: 20060418
  Receipt Date: 20060215
  Transmission Date: 20061013
  Serious: Yes (Hospitalization)
  Sender: FDA-Public Use
  Company Number: US-MERCK-0602USA04446

PATIENT
  Age: 70 Year
  Sex: Male
  Weight: 96 kg

DRUGS (10)
  1. VIOXX [Suspect]
     Indication: ARTHRALGIA
     Route: 048
     Dates: start: 20011027, end: 20040620
  2. VIOXX [Suspect]
     Route: 048
     Dates: start: 20011027, end: 20040620
  3. FLOMAX (MORNIFLUMATE) [Concomitant]
     Indication: BENIGN PROSTATIC HYPERPLASIA
     Route: 065
     Dates: start: 20010124
  4. LIPITOR [Concomitant]
     Indication: BLOOD CHOLESTEROL
     Route: 065
     Dates: start: 19990921
  5. ADVICOR [Concomitant]
     Route: 065
     Dates: start: 20030513
  6. ATENOLOL [Concomitant]
     Indication: HYPERTENSION
     Route: 065
     Dates: start: 19991111
  7. AVAPRO [Concomitant]
     Indication: HYPERTENSION
     Route: 065
     Dates: start: 20001222
  8. KETOROLAC TROMETHAMINE [Concomitant]
     Route: 065
  9. GLUCOPHAGE XR [Concomitant]
     Route: 065
  10. [THERAPY UNSPECIFIED] [Concomitant]
     Route: 065

REACTIONS (3)
  - ARTHRALGIA [None]
  - CORONARY ARTERY DISEASE [None]
  - MYOCARDIAL INFARCTION [None]
